FAERS Safety Report 20258569 (Version 6)
Quarter: 2022Q1

REPORT INFORMATION
  Report Type: Spontaneous
  Country: US (occurrence: US)
  Receive Date: 20211230
  Receipt Date: 20220222
  Transmission Date: 20220423
  Serious: Yes (Hospitalization, Other)
  Sender: FDA-Public Use
  Company Number: US-PFIZER INC-202101797896

PATIENT
  Age: 60 Year
  Sex: Female
  Weight: 69.85 kg

DRUGS (3)
  1. ESTRING [Suspect]
     Active Substance: ESTRADIOL
     Indication: Hormone replacement therapy
     Dosage: EVERY 2 TO 3 MONTHS
     Route: 067
     Dates: start: 1991
  2. ESTRING [Suspect]
     Active Substance: ESTRADIOL
     Dosage: 7.5 UG, 1X/DAY
  3. WARFARIN [Suspect]
     Active Substance: WARFARIN
     Dosage: UNK

REACTIONS (11)
  - Knee operation [Unknown]
  - Pulmonary thrombosis [Unknown]
  - Haemorrhoidal haemorrhage [Unknown]
  - Therapeutic response unexpected [Unknown]
  - Asthenia [Unknown]
  - Bone density abnormal [Unknown]
  - Body height decreased [Unknown]
  - Weight decreased [Unknown]
  - Feeling abnormal [Unknown]
  - Haemorrhoids [Unknown]
  - Off label use [Unknown]

NARRATIVE: CASE EVENT DATE: 19910101
